FAERS Safety Report 4357329-5 (Version None)
Quarter: 2004Q2

REPORT INFORMATION
  Report Type: 
  Country: None (occurrence: None)
  Receive Date: 20040506
  Receipt Date: 20040423
  Transmission Date: 20050107
  Serious: Yes (Other)
  Sender: FDA-Public Use
  Company Number: 2004027799

PATIENT
  Age: 66 Year
  Sex: Male

DRUGS (2)
  1. NEURONTIN [Suspect]
     Indication: CONVULSION
     Dosage: 1800 (TID), ORAL
     Route: 048
  2. GEMFIBROZIL [Concomitant]

REACTIONS (4)
  - CONVULSION [None]
  - INFECTION [None]
  - PHARMACEUTICAL PRODUCT COMPLAINT [None]
  - STARING [None]
